FAERS Safety Report 9458375 (Version 1)
Quarter: 2013Q3

REPORT INFORMATION
  Report Type: Spontaneous
  Country: US (occurrence: US)
  Receive Date: 20130814
  Receipt Date: 20130814
  Transmission Date: 20140515
  Serious: No
  Sender: FDA-Public Use
  Company Number: US-009507513-1308USA005219

PATIENT
  Age: 38 Year
  Sex: Female
  Weight: 127 kg

DRUGS (1)
  1. NEXPLANON [Suspect]
     Route: 059

REACTIONS (2)
  - Chest pain [Unknown]
  - Mood swings [Unknown]
